FAERS Safety Report 7096439-9 (Version None)
Quarter: 2010Q4

REPORT INFORMATION
  Report Type: 
  Country: None (occurrence: None)
  Receive Date: 20101111
  Receipt Date: 20090206
  Transmission Date: 20110411
  Serious: No
  Sender: FDA-Public Use
  Company Number: US-KINGPHARMUSA00001-K200900120

PATIENT
  Sex: Male

DRUGS (1)
  1. ALTACE [Suspect]
     Indication: HYPERTENSION
     Dosage: 10 MG, BID
     Route: 048
     Dates: end: 20090127

REACTIONS (5)
  - COUGH [None]
  - DYSPHONIA [None]
  - INSOMNIA [None]
  - OROPHARYNGEAL PAIN [None]
  - VOMITING [None]
